FAERS Safety Report 7581887-0 (Version None)
Quarter: 2011Q2

REPORT INFORMATION
  Report Type: 
  Country: None (occurrence: None)
  Receive Date: 20110629
  Receipt Date: 20110120
  Transmission Date: 20111010
  Serious: Yes (Congenital Anomaly, Other)
  Sender: FDA-Public Use
  Company Number: PHHO2011ZM02287

PATIENT
  Sex: Female
  Weight: 3.83 kg

DRUGS (1)
  1. ARTEMETHER [Suspect]
     Indication: MALARIA

REACTIONS (2)
  - TRACHEOMALACIA [None]
  - DRUG EXPOSURE DURING PREGNANCY [None]
